FAERS Safety Report 25578773 (Version 1)
Quarter: 2025Q3

REPORT INFORMATION
  Report Type: Spontaneous
  Country: GB (occurrence: GB)
  Receive Date: 20250718
  Receipt Date: 20250718
  Transmission Date: 20251021
  Serious: Yes (Life-Threatening, Other)
  Sender: ELI LILLY AND COMPANY
  Company Number: None

PATIENT
  Age: 61 Year
  Sex: Male
  Weight: 93 kg

DRUGS (7)
  1. MOUNJARO [Suspect]
     Active Substance: TIRZEPATIDE
     Indication: Weight control
     Dosage: UNK UNK, WEEKLY (1/W)
     Route: 065
  2. MOUNJARO [Suspect]
     Active Substance: TIRZEPATIDE
     Indication: Weight control
     Dosage: 10 MG, WEEKLY (1/W)
     Route: 065
     Dates: start: 20250701
  3. LISDEXAMFETAMINE DIMESYLATE [Concomitant]
     Active Substance: LISDEXAMFETAMINE DIMESYLATE
     Indication: Attention deficit hyperactivity disorder
     Dates: start: 20231101
  4. LOSARTAN [Concomitant]
     Active Substance: LOSARTAN
     Indication: Prehypertension
     Dates: start: 20240601
  5. ATORVASTATIN [Concomitant]
     Active Substance: ATORVASTATIN
     Indication: Cardiovascular symptom
     Dates: start: 20240701
  6. OMEPRAZOLE [Concomitant]
     Active Substance: OMEPRAZOLE
     Indication: Gastrooesophageal reflux disease
     Dates: start: 20240701
  7. FLUTICASONE [Concomitant]
     Active Substance: FLUTICASONE
     Indication: Upper-airway cough syndrome
     Dates: start: 20250501

REACTIONS (16)
  - Hyperthermia [Recovered/Resolved]
  - Malabsorption [Recovered/Resolved]
  - Peripheral coldness [Unknown]
  - Headache [Unknown]
  - Electrolyte imbalance [Recovered/Resolved]
  - Gastrointestinal disorder [Recovered/Resolved]
  - Fall [Recovered/Resolved]
  - Muscle spasms [Recovered/Resolved]
  - Heat exhaustion [Recovered/Resolved]
  - Blood glucose abnormal [Unknown]
  - Body temperature abnormal [Unknown]
  - Blood glucose decreased [Recovered/Resolved]
  - Nausea [Recovered/Resolved]
  - Constipation [Unknown]
  - Abdominal distension [Recovered/Resolved]
  - Eructation [Recovered/Resolved]

NARRATIVE: CASE EVENT DATE: 20250712
